FAERS Safety Report 9923972 (Version 2)
Quarter: 2014Q1

REPORT INFORMATION
  Report Type: Spontaneous
  Country: US (occurrence: US)
  Receive Date: 20140225
  Receipt Date: 20140225
  Transmission Date: 20141002
  Serious: Yes (Hospitalization, Other)
  Sender: FDA-Public Use
  Company Number: US-TEVA-457221USA

PATIENT
  Age: 57 Year
  Sex: Female
  Weight: 102.15 kg

DRUGS (12)
  1. CLOZAPINE [Suspect]
     Indication: SCHIZOAFFECTIVE DISORDER
     Dates: start: 20131116
  2. OMEPRAZOLE [Interacting]
     Indication: DYSPEPSIA
     Dates: end: 20140109
  3. FAMOTIDINE [Concomitant]
     Indication: DYSPEPSIA
     Dates: start: 20140109
  4. LORAZEPAM [Concomitant]
     Indication: ANXIETY
     Dosage: .5 MILLIGRAM DAILY;
     Route: 048
  5. BENZATROPINE MESILATE [Concomitant]
     Indication: EXTRAPYRAMIDAL DISORDER
     Dosage: 2 MILLIGRAM DAILY;
     Route: 048
  6. HALOPERIDOL [Concomitant]
     Indication: PROPHYLAXIS
     Dosage: 2.5 MILLIGRAM DAILY; HS
     Route: 048
  7. LEVOTHYROXINE SODIUM [Concomitant]
     Indication: HYPOTHYROIDISM
     Dosage: 100 MICROGRAM DAILY; AM
     Route: 048
  8. PROPRANOLOL [Concomitant]
     Indication: HYPERTENSION
     Dosage: 80 MILLIGRAM DAILY;
     Route: 048
  9. OXYBUTYNIN [Concomitant]
     Indication: HYPERTONIC BLADDER
     Dosage: 10 MILLIGRAM DAILY;
     Route: 048
  10. DOCUSATE SODIUM [Concomitant]
     Indication: PROPHYLAXIS
     Dosage: 200 MILLIGRAM DAILY;
     Route: 048
  11. ACETYLSALICYLIC ACID [Concomitant]
     Indication: PROPHYLAXIS
     Dosage: 81 MILLIGRAM DAILY;
     Route: 048
  12. SALBUTAMOL SULFATE [Concomitant]

REACTIONS (11)
  - Toxicity to various agents [Recovering/Resolving]
  - Drug interaction [Recovering/Resolving]
  - Electrocardiogram QT prolonged [Recovering/Resolving]
  - Electrocardiogram change [Recovering/Resolving]
  - Adverse event [Recovered/Resolved]
  - Eosinophilia [Unknown]
  - White blood cell disorder [Unknown]
  - Vomiting [Recovered/Resolved]
  - Dyspepsia [Not Recovered/Not Resolved]
  - Drooling [Recovering/Resolving]
  - Irritability [Recovering/Resolving]
